FAERS Safety Report 13990380 (Version 1)
Quarter: 2017Q3

REPORT INFORMATION
  Report Type: Spontaneous
  Country: BE (occurrence: BE)
  Receive Date: 20170920
  Receipt Date: 20170920
  Transmission Date: 20171128
  Serious: Yes (Other)
  Sender: FDA-Public Use
  Company Number: BE-BAYER-2017-176050

PATIENT
  Age: 82 Year
  Sex: Male

DRUGS (2)
  1. XOFIGO [Suspect]
     Active Substance: RADIUM RA-223 DICHLORIDE
     Indication: PROSTATE CANCER
     Dosage: UNK
     Dates: start: 2017
  2. XOFIGO [Suspect]
     Active Substance: RADIUM RA-223 DICHLORIDE
     Indication: METASTASES TO BONE

REACTIONS (6)
  - Blood alkaline phosphatase increased [None]
  - Prostate cancer metastatic [None]
  - Metastases to bone [None]
  - Prostatic specific antigen increased [None]
  - Metastases to soft tissue [None]
  - Spinal pain [None]

NARRATIVE: CASE EVENT DATE: 2017
